FAERS Safety Report 4901167-9 (Version None)
Quarter: 2006Q1

REPORT INFORMATION
  Report Type: 
  Country: None (occurrence: None)
  Receive Date: 20060201
  Receipt Date: 20060127
  Transmission Date: 20060701
  Serious: Yes (Other)
  Sender: FDA-Public Use
  Company Number: HQWYE573230JAN06

PATIENT
  Age: 55 Year
  Sex: Female

DRUGS (1)
  1. PANTOPRAZOLE SODIUM [Suspect]
     Indication: GASTROOESOPHAGEAL REFLUX DISEASE
     Dosage: ^DF^
     Route: 048
     Dates: start: 20060113, end: 20060113

REACTIONS (4)
  - ANAPHYLACTIC REACTION [None]
  - EXTRASYSTOLES [None]
  - HYPOTENSION [None]
  - TACHYCARDIA [None]
